FAERS Safety Report 4353653-0 (Version None)
Quarter: 2004Q2

REPORT INFORMATION
  Report Type: 
  Country: None (occurrence: None)
  Receive Date: 20040430
  Receipt Date: 20040419
  Transmission Date: 20050107
  Serious: Yes (Other)
  Sender: FDA-Public Use
  Company Number: 2004026687

PATIENT
  Age: 75 Year
  Sex: Female
  Weight: 76.2043 kg

DRUGS (9)
  1. LIPITOR [Suspect]
     Indication: BLOOD CHOLESTEROL
     Dosage: 10 MG (DAILY), ORAL
     Route: 048
     Dates: start: 20030101
  2. LISINOPRIL [Concomitant]
  3. DILTIAZEM [Concomitant]
  4. LEVOTHYROXINE SODIUM [Concomitant]
  5. ACETYLSALICYLIC ACID SRT [Concomitant]
  6. CARBAMAZEPINE (CABAMAZEPINE) [Concomitant]
  7. VITAMINS (VITAMINS) [Concomitant]
  8. SIMVASTATIN [Concomitant]
  9. FISH OIL (FISH OIL) [Concomitant]

REACTIONS (1)
  - CORONARY ARTERIAL STENT INSERTION [None]
